FAERS Safety Report 9263002 (Version 2)
Quarter: 2013Q2

REPORT INFORMATION
  Report Type: Spontaneous
  Country: JP (occurrence: JP)
  Receive Date: 20130430
  Receipt Date: 20130508
  Transmission Date: 20140414
  Serious: Yes (Hospitalization)
  Sender: FDA-Public Use
  Company Number: JP-ELI_LILLY_AND_COMPANY-JP201304006472

PATIENT
  Sex: Female

DRUGS (1)
  1. FORTEO [Suspect]
     Route: 058

REACTIONS (4)
  - Compression fracture [Not Recovered/Not Resolved]
  - Injection site erythema [Unknown]
  - Injection site induration [Unknown]
  - Blood alkaline phosphatase increased [Unknown]
